FAERS Safety Report 8909477 (Version 1)
Quarter: 2012Q4

REPORT INFORMATION
  Report Type: 
  Country: RU (occurrence: RU)
  Receive Date: 20121115
  Receipt Date: 20121115
  Transmission Date: 20130627
  Serious: Yes (Life-Threatening)
  Sender: FDA-Public Use
  Company Number: RU-SANOFI-AVENTIS-2012SA081743

PATIENT
  Age: 60 Year
  Sex: Female

DRUGS (4)
  1. CLEXANE [Suspect]
     Indication: DEEP VENOUS THROMBOSIS PROPHYLAXIS
     Route: 058
     Dates: start: 20121023, end: 20121025
  2. CEFAZOLIN [Suspect]
     Indication: DRUG USE FOR UNKNOWN INDICATION
     Route: 030
     Dates: start: 20121023, end: 20121025
  3. GLUCOSE [Suspect]
     Indication: DRUG USE FOR UNKNOWN INDICATION
     Route: 042
     Dates: start: 20121023, end: 20121025
  4. TRAMAL [Suspect]
     Indication: PAIN RELIEF
     Route: 030
     Dates: start: 20121024, end: 20121025

REACTIONS (1)
  - Angioedema [Recovered/Resolved]
